FAERS Safety Report 4877320-X (Version None)
Quarter: 2006Q1

REPORT INFORMATION
  Report Type: 
  Country: None (occurrence: None)
  Receive Date: 20060109
  Receipt Date: 20051227
  Transmission Date: 20060701
  Serious: Yes (Hospitalization)
  Sender: FDA-Public Use
  Company Number: 2005-BP-21847RO

PATIENT
  Age: 82 Year
  Sex: Female

DRUGS (9)
  1. METHOTREXATE [Suspect]
     Dosage: 1205 MG/WEEK, PO
     Route: 048
  2. LISINOPRIL [Concomitant]
  3. DIGOXIN [Concomitant]
  4. AMIODARONE HCL [Concomitant]
  5. FUROSEMIDE [Concomitant]
  6. LANSOPRAZOLE [Concomitant]
  7. CALCICHEW (CALCIUM CARBONATE) [Concomitant]
  8. ALENDRONATE (ALENDRONATE SODIUM) [Concomitant]
  9. IRON (IRON) [Concomitant]

REACTIONS (2)
  - MUCOSAL INFLAMMATION [None]
  - PANCYTOPENIA [None]
